FAERS Safety Report 21249762 (Version 1)
Quarter: 2022Q3

REPORT INFORMATION
  Report Type: Spontaneous
  Country: US (occurrence: US)
  Receive Date: 20220824
  Receipt Date: 20220824
  Transmission Date: 20221027
  Serious: No
  Sender: FDA-Public Use
  Company Number: US-ARBOR PHARMACEUTICALS, LLC-US-2021ARB001515

PATIENT
  Age: 8 Year
  Sex: Female

DRUGS (3)
  1. TRIPTODUR [Suspect]
     Active Substance: TRIPTORELIN
     Indication: Hyperpituitarism
     Dosage: UNK, SINGLE (Q6M)
     Route: 030
     Dates: start: 20211109, end: 20211109
  2. TRIPTODUR [Suspect]
     Active Substance: TRIPTORELIN
  3. TRIPTODUR [Suspect]
     Active Substance: TRIPTORELIN

REACTIONS (4)
  - Syringe issue [Recovered/Resolved]
  - Needle issue [Recovered/Resolved]
  - Product administration error [Recovered/Resolved]
  - Off label use [Recovered/Resolved]

NARRATIVE: CASE EVENT DATE: 20211109
